FAERS Safety Report 9740312 (Version 2)
Quarter: 2013Q4

REPORT INFORMATION
  Report Type: Spontaneous
  Country: JP (occurrence: JP)
  Receive Date: 20131209
  Receipt Date: 20131216
  Transmission Date: 20140711
  Serious: No
  Sender: FDA-Public Use
  Company Number: JP-PFIZER INC-2013346479

PATIENT
  Age: 87 Year
  Sex: Male

DRUGS (1)
  1. ZITHROMAC [Suspect]
     Indication: PNEUMONIA
     Dosage: 500 MG, DAILY
     Route: 041
     Dates: start: 20131120, end: 20131125

REACTIONS (2)
  - Dyspnoea [Recovered/Resolved]
  - Vascular pain [Recovered/Resolved]
